FAERS Safety Report 6147612-5 (Version None)
Quarter: 2009Q2

REPORT INFORMATION
  Report Type: 
  Country: None (occurrence: None)
  Receive Date: 20090408
  Receipt Date: 20090401
  Transmission Date: 20091009
  Serious: Yes (Death, Hospitalization, Other)
  Sender: FDA-Public Use
  Company Number: DE-CELGENEUS-062-21880-08051461

PATIENT
  Sex: Male
  Weight: 92 kg

DRUGS (5)
  1. REVLIMID [Suspect]
     Indication: MULTIPLE MYELOMA
     Route: 048
     Dates: start: 20080331, end: 20080420
  2. REVLIMID [Suspect]
     Route: 048
     Dates: start: 20080428, end: 20080509
  3. DEXAMETHASONE [Concomitant]
     Indication: MULTIPLE MYELOMA
     Route: 048
     Dates: start: 20080331, end: 20080503
  4. ZOMETA [Concomitant]
     Indication: METASTASES TO BONE
     Route: 051
     Dates: start: 20080409, end: 20080430
  5. ARANESP [Concomitant]
     Route: 058
     Dates: start: 20080428, end: 20080428

REACTIONS (5)
  - GENERAL PHYSICAL HEALTH DETERIORATION [None]
  - MULTIPLE MYELOMA [None]
  - NEUTROPENIA [None]
  - PNEUMONIA [None]
  - RENAL FAILURE ACUTE [None]
